FAERS Safety Report 7370632-X (Version None)
Quarter: 2011Q1

REPORT INFORMATION
  Report Type: 
  Country: None (occurrence: None)
  Receive Date: 20110323
  Receipt Date: 20110316
  Transmission Date: 20110831
  Serious: Yes (Other)
  Sender: FDA-Public Use
  Company Number: US-RB-024153-11

PATIENT
  Age: 21 Year
  Sex: Male

DRUGS (7)
  1. SUBOXONE [Suspect]
     Dosage: SUBLINGUAL FILM
     Route: 060
     Dates: start: 20110311, end: 20110315
  2. SUBOXONE [Suspect]
     Indication: DRUG DEPENDENCE
     Dosage: SUBLINGUAL FILM
     Route: 060
     Dates: start: 20110316
  3. HEROIN [Suspect]
     Dosage: DOSING INFORMATION UNKNOWN
     Route: 042
     Dates: end: 20110301
  4. HEROIN [Suspect]
     Indication: DRUG ABUSE
     Dosage: DOSING INFORMATION UNKNOWN
     Route: 045
     Dates: end: 20110301
  5. ADDERALL 10 [Suspect]
     Route: 048
     Dates: start: 20110314
  6. ADDERALL 10 [Suspect]
     Indication: ATTENTION DEFICIT/HYPERACTIVITY DISORDER
     Route: 048
     Dates: end: 20110313
  7. SEROQUEL [Suspect]
     Indication: INSOMNIA
     Route: 048
     Dates: end: 20110314

REACTIONS (3)
  - MEMORY IMPAIRMENT [None]
  - OFF LABEL USE [None]
  - HALLUCINATION [None]
